FAERS Safety Report 9977036 (Version 1)
Quarter: 2014Q1

REPORT INFORMATION
  Report Type: Report from Study
  Country: US (occurrence: US)
  Receive Date: 20140306
  Receipt Date: 20140306
  Transmission Date: 20141002
  Serious: No
  Sender: FDA-Public Use
  Company Number: US-ABBVIE-13P-163-1166884-00

PATIENT
  Age: 39 Year
  Sex: Female

DRUGS (19)
  1. HUMIRA [Suspect]
     Indication: CROHN^S DISEASE
     Dates: start: 20131028, end: 20131028
  2. HUMIRA [Suspect]
     Dates: start: 20131111, end: 20131111
  3. HUMIRA [Suspect]
  4. VIIBRYD [Concomitant]
     Indication: DEPRESSION
  5. LORAZEPAM [Concomitant]
     Indication: ANXIETY
  6. BUPROPION [Concomitant]
     Indication: DEPRESSION
  7. TRAZODONE [Concomitant]
     Indication: SLEEP DISORDER THERAPY
     Dosage: ONE AT NIGHT
  8. WARFARIN [Concomitant]
     Indication: PRODUCT USED FOR UNKNOWN INDICATION
     Dosage: SUNDAY, WEDNESDAY, FRIDAY
  9. WARFARIN [Concomitant]
     Dosage: MONDAY, TUESDAY, THURSDAY, SATURDAY
  10. METOPROLOL [Concomitant]
     Indication: HYPERTENSION
  11. PROMETHAZINE [Concomitant]
     Indication: NAUSEA
  12. PANTOPRAZOLE [Concomitant]
     Indication: GASTROOESOPHAGEAL REFLUX DISEASE
  13. CALCIUM WITH VITAMIN D [Concomitant]
     Indication: PRODUCT USED FOR UNKNOWN INDICATION
  14. VITAMIN B-12 [Concomitant]
     Indication: PRODUCT USED FOR UNKNOWN INDICATION
  15. IRON PILLS [Concomitant]
     Indication: PRODUCT USED FOR UNKNOWN INDICATION
     Dosage: PILL
  16. VITAMIN C PILL [Concomitant]
     Indication: PRODUCT USED FOR UNKNOWN INDICATION
     Dosage: PILL
  17. GABAPENTIN [Concomitant]
     Indication: NEURALGIA
  18. GABAPENTIN [Concomitant]
  19. GABAPENTIN [Concomitant]
     Dosage: AT EVENING

REACTIONS (5)
  - Neuralgia [Not Recovered/Not Resolved]
  - Arthralgia [Not Recovered/Not Resolved]
  - Rash [Not Recovered/Not Resolved]
  - Injection site pain [Not Recovered/Not Resolved]
  - Muscular weakness [Recovering/Resolving]
